FAERS Safety Report 7794026 (Version 2)
Quarter: 2013Q1

REPORT INFORMATION
  Report Type: Report from Study
  Country: JP (occurrence: JP)
  Receive Date: 20110201
  Receipt Date: 20130305
  Transmission Date: 20140127
  Serious: Yes (Other)
  Sender: FDA-Public Use
  Company Number: JP-ELI_LILLY_AND_COMPANY-JP201101005420

PATIENT
  Age: 43 Year
  Sex: Female

DRUGS (11)
  1. TADALAFIL [Suspect]
     Indication: PULMONARY ARTERIAL HYPERTENSION
     Dosage: 40 MG, DAILY (1/D)
     Route: 048
     Dates: start: 20100526, end: 20100715
  2. FLOLAN [Concomitant]
     Indication: PULMONARY ARTERIAL HYPERTENSION
     Dosage: UNK, DAILY (1/D)
     Route: 042
     Dates: start: 20070427
  3. TRACLEER [Concomitant]
     Indication: PULMONARY ARTERIAL HYPERTENSION
     Dosage: 125 MG, DAILY (1/D)
     Route: 048
     Dates: start: 200512
  4. WARFARIN [Concomitant]
     Indication: PULMONARY ARTERIAL HYPERTENSION
     Dosage: 5 MG, DAILY (1/D)
     Route: 048
  5. ZYLORIC [Concomitant]
     Indication: HYPERURICAEMIA
     Dosage: 100 MG, DAILY (1/D)
     Route: 048
  6. FLUITRAN [Concomitant]
     Indication: PULMONARY ARTERIAL HYPERTENSION
     Dosage: 0.5 MG, DAILY (1/D)
     Route: 048
  7. ALDACTONE A [Concomitant]
     Indication: PULMONARY ARTERIAL HYPERTENSION
     Dosage: 50 MG, DAILY (1/D)
     Route: 048
  8. SLOW-K [Concomitant]
     Indication: HYPOKALAEMIA
     Dosage: 3.6 G, UNK
  9. LASIX [Concomitant]
     Indication: PULMONARY ARTERIAL HYPERTENSION
     Route: 048
  10. GASTER [Concomitant]
     Dosage: 40 MG, DAILY (1/D)
     Route: 048
  11. FERROMIA [Concomitant]
     Indication: IRON DEFICIENCY
     Dosage: 200 MG, DAILY (1/D)
     Route: 048

REACTIONS (1)
  - Right ventricular failure [Recovered/Resolved]
